FAERS Safety Report 7365395-8 (Version None)
Quarter: 2011Q1

REPORT INFORMATION
  Report Type: 
  Country: None (occurrence: None)
  Receive Date: 20110322
  Receipt Date: 20110311
  Transmission Date: 20110831
  Serious: No
  Sender: FDA-Public Use
  Company Number: US-BIOGENIDEC-2011BI009546

PATIENT
  Sex: Female

DRUGS (2)
  1. AVONEX [Suspect]
     Route: 030
     Dates: start: 20000601, end: 20051201
  2. AVONEX [Suspect]
     Indication: MULTIPLE SCLEROSIS
     Route: 030
     Dates: start: 20060718, end: 20110220

REACTIONS (6)
  - MUSCLE TIGHTNESS [None]
  - INFLUENZA LIKE ILLNESS [None]
  - WEIGHT INCREASED [None]
  - EPISCLERITIS [None]
  - TREMOR [None]
  - HYPOTHYROIDISM [None]
